FAERS Safety Report 6763799-5 (Version None)
Quarter: 2010Q2

REPORT INFORMATION
  Report Type: 
  Country: None (occurrence: None)
  Receive Date: 20100610
  Receipt Date: 20100602
  Transmission Date: 20101027
  Serious: Yes (Other)
  Sender: FDA-Public Use
  Company Number: US-PERRIGO-10US010184

PATIENT
  Sex: Male
  Weight: 90.703 kg

DRUGS (5)
  1. ASPIRIN [Suspect]
     Indication: PROPHYLAXIS
     Dosage: 81 MG, QD
     Route: 048
     Dates: start: 20080602, end: 20100603
  2. TICLOPIDINE HCL [Suspect]
     Indication: PROPHYLAXIS
     Dosage: 250 MG, BID
     Route: 048
     Dates: start: 20100329, end: 20100603
  3. SIMVASTATIN [Concomitant]
     Indication: BLOOD CHOLESTEROL INCREASED
     Dosage: 40 MG, QD
     Dates: start: 20050601
  4. LOTREL [Concomitant]
     Indication: HYPERTENSION
     Dosage: 5-20 MG QD
     Dates: start: 20050601
  5. PLAVIX [Concomitant]
     Indication: PROPHYLAXIS
     Dosage: 70 MG, QD
     Route: 048
     Dates: start: 20091001

REACTIONS (7)
  - ANXIETY [None]
  - BONE DENSITY DECREASED [None]
  - EAR PAIN [None]
  - FATIGUE [None]
  - HEADACHE [None]
  - INCORRECT DRUG ADMINISTRATION DURATION [None]
  - TOOTH LOSS [None]
